FAERS Safety Report 24076173 (Version 1)
Quarter: 2024Q3

REPORT INFORMATION
  Report Type: Spontaneous
  Country: US (occurrence: US)
  Receive Date: 20240710
  Receipt Date: 20240710
  Transmission Date: 20241016
  Serious: No
  Sender: ABBVIE
  Company Number: US-ABBVIE-5833003

PATIENT
  Age: 86 Year
  Sex: Female

DRUGS (4)
  1. LINZESS [Suspect]
     Active Substance: LINACLOTIDE
     Indication: Constipation
     Dosage: UNKNOWN
     Route: 048
     Dates: start: 2016
  2. LINZESS [Suspect]
     Active Substance: LINACLOTIDE
     Indication: Constipation
     Dosage: FORM STRENGTH: 145 MICROGRAM
     Route: 048
     Dates: start: 20240702, end: 20240707
  3. HYDROCODONE [Concomitant]
     Active Substance: HYDROCODONE
     Indication: Spinal disorder
     Dosage: TIME INTERVAL: 0.16666667 DAYS
  4. Dulcolax [Concomitant]
     Indication: Product used for unknown indication
     Dates: start: 202406

REACTIONS (2)
  - Abdominal pain upper [Recovering/Resolving]
  - Back pain [Recovered/Resolved]

NARRATIVE: CASE EVENT DATE: 20240624
